FAERS Safety Report 25955240 (Version 1)
Quarter: 2025Q4

REPORT INFORMATION
  Report Type: Report from Study
  Country: CN (occurrence: CN)
  Receive Date: 20251024
  Receipt Date: 20251024
  Transmission Date: 20260118
  Serious: Yes (Other)
  Sender: IPSEN BIOPHARMACEUTICALS, INC.
  Company Number: CN-IPSEN Group, Research and Development-2022-25482

PATIENT

DRUGS (3)
  1. IRINOTECAN HYDROCHLORIDE [Suspect]
     Active Substance: IRINOTECAN HYDROCHLORIDE
     Dosage: 80MG/M2 ONCE WITHIN 48 HRS AFTER RADIOTHERAPY
  2. CAMRELIZUMAB [Suspect]
     Active Substance: CAMRELIZUMAB
     Indication: Neoplasm
     Dosage: 200MG
  3. RIVOCERANIB [Suspect]
     Active Substance: RIVOCERANIB
     Indication: Neoplasm

REACTIONS (3)
  - Lymphocyte count decreased [Unknown]
  - White blood cell count decreased [Unknown]
  - Anaemia [Unknown]
